FAERS Safety Report 18140091 (Version 1)
Quarter: 2020Q3

REPORT INFORMATION
  Report Type: Spontaneous
  Country: US (occurrence: US)
  Receive Date: 20200812
  Receipt Date: 20200812
  Transmission Date: 20201103
  Serious: No
  Sender: FDA-Public Use
  Company Number: None

PATIENT
  Age: 70 Year
  Sex: Male
  Weight: 72.9 kg

DRUGS (17)
  1. CAPECITABINE. [Suspect]
     Active Substance: CAPECITABINE
     Route: 048
     Dates: start: 20190517, end: 20200812
  2. MAGIC MOUTHWASH [Concomitant]
     Active Substance: DIPHENHYDRAMINE HYDROCHLORIDE\LIDOCAINE HYDROCHLORIDE\NYSTATIN
  3. DEXAMETHASONE 0.5MG/5ML [Concomitant]
  4. UREA 40% [Concomitant]
  5. HEPARIN LOCK FLUSH [Concomitant]
     Active Substance: HEPARIN SODIUM
  6. CBD KINGS [Concomitant]
  7. CYANOCOBALAMIN 1000MCG/ML [Concomitant]
  8. CARVEDILOL. [Concomitant]
     Active Substance: CARVEDILOL
  9. LIDOCAINE/PRILOCAINE 2.5/2.5% [Concomitant]
  10. NORMAL SALINE FLUSH IV [Concomitant]
  11. LORAZEPAM 1MG [Concomitant]
     Active Substance: LORAZEPAM
  12. NATURALYTE [Concomitant]
     Active Substance: ACETIC ACID\SODIUM ACETATE
  13. GABAPENTIN 300MG [Concomitant]
     Active Substance: GABAPENTIN
  14. NYSTATIN 100,000 U [Concomitant]
  15. FLONASE 50MCG/ACT [Concomitant]
  16. LISINOPRIL. [Concomitant]
     Active Substance: LISINOPRIL
  17. PROCHLORPERAZINE. [Concomitant]
     Active Substance: PROCHLORPERAZINE

REACTIONS (1)
  - Drug resistance [None]

NARRATIVE: CASE EVENT DATE: 20200812
